FAERS Safety Report 23049320 (Version 1)
Quarter: 2023Q4

REPORT INFORMATION
  Report Type: Report from Study
  Country: CA (occurrence: None)
  Receive Date: 20231010
  Receipt Date: 20231010
  Transmission Date: 20240109
  Serious: Yes (Hospitalization)
  Sender: FDA-Public Use
  Company Number: 2023A226649

PATIENT
  Sex: Male

DRUGS (3)
  1. BREZTRI [Suspect]
     Active Substance: BUDESONIDE\FORMOTEROL\GLYCOPYRROLATE
     Dosage: 2 PUFFS 2XDAILY
     Route: 055
  2. PREDNISONE [Concomitant]
     Active Substance: PREDNISONE
  3. ALBUTEROL [Concomitant]
     Active Substance: ALBUTEROL
     Dosage: 100MCG PRN

REACTIONS (2)
  - Asthma [Unknown]
  - Drug ineffective [Unknown]
